APPROVED DRUG PRODUCT: NADOLOL
Active Ingredient: NADOLOL
Strength: 80MG
Dosage Form/Route: TABLET;ORAL
Application: A210786 | Product #003
Applicant: NOVAST LABORATORIES LTD
Approved: Jun 1, 2018 | RLD: No | RS: No | Type: DISCN